FAERS Safety Report 6205318-8 (Version None)
Quarter: 2009Q2

REPORT INFORMATION
  Report Type: 
  Country: None (occurrence: None)
  Receive Date: 20090527
  Receipt Date: 20090311
  Transmission Date: 20091009
  Serious: No
  Sender: FDA-Public Use
  Company Number: US-ABBOTT-09P-163-0562151-00

PATIENT
  Age: 59 Year
  Sex: Female

DRUGS (13)
  1. SIMCOR [Suspect]
     Indication: BLOOD TRIGLYCERIDES INCREASED
     Dosage: 1000/20MG
     Dates: start: 20090201
  2. SIMCOR [Suspect]
     Dosage: 500/20MG QHS
     Dates: start: 20090201
  3. SIMCOR [Suspect]
     Dosage: 500/20MG
     Dates: start: 20090301
  4. TRILIPIX [Concomitant]
     Indication: DRUG USE FOR UNKNOWN INDICATION
  5. RESTASIS [Concomitant]
     Indication: DRUG USE FOR UNKNOWN INDICATION
  6. FOSAMAX [Concomitant]
     Indication: DRUG USE FOR UNKNOWN INDICATION
  7. ASTELIN [Concomitant]
     Indication: DRUG USE FOR UNKNOWN INDICATION
  8. MULTI-VITAMIN [Concomitant]
     Indication: DRUG USE FOR UNKNOWN INDICATION
  9. CALTRATE [Concomitant]
     Indication: DRUG USE FOR UNKNOWN INDICATION
  10. FOLIC ACID [Concomitant]
     Indication: DRUG USE FOR UNKNOWN INDICATION
  11. FISH OIL [Concomitant]
     Indication: DRUG USE FOR UNKNOWN INDICATION
  12. PEPCID AC [Concomitant]
     Indication: DRUG USE FOR UNKNOWN INDICATION
  13. ASPIRIN [Concomitant]
     Indication: DRUG USE FOR UNKNOWN INDICATION

REACTIONS (2)
  - FLUSHING [None]
  - HEADACHE [None]
